FAERS Safety Report 12641539 (Version 1)
Quarter: 2016Q3

REPORT INFORMATION
  Report Type: Spontaneous
  Country: US (occurrence: US)
  Receive Date: 20160810
  Receipt Date: 20160810
  Transmission Date: 20161109
  Serious: No
  Sender: FDA-Public Use
  Company Number: US-PFIZER INC-2016380397

PATIENT
  Age: 57 Year
  Sex: Female
  Weight: 50.8 kg

DRUGS (14)
  1. FOSINOPRIL SODIUM. [Concomitant]
     Active Substance: FOSINOPRIL SODIUM
     Indication: CARDIOMYOPATHY
     Dosage: 10MG ONE TABLET BY MOUTH ONCE A DAY AT NIGHT
     Route: 048
     Dates: start: 2002
  2. CARVEDILOL. [Concomitant]
     Active Substance: CARVEDILOL
     Indication: CARDIOMYOPATHY
     Dosage: 25MG ONE TABLET BY MOUTH TWICE DAY
     Route: 048
     Dates: start: 2002
  3. LYRICA [Suspect]
     Active Substance: PREGABALIN
     Dosage: 75 MG IN THE MORNING AND 50 MG AT NIGHT
     Dates: start: 20160807
  4. LYRICA [Suspect]
     Active Substance: PREGABALIN
     Dosage: 75 MG IN THE MORNING AND 75 MG AT NIGHT
     Dates: start: 20160730, end: 20160806
  5. NEXIUM [Concomitant]
     Active Substance: ESOMEPRAZOLE MAGNESIUM
     Indication: ABDOMINAL PAIN UPPER
     Dosage: 40MG ONE CAPULSE BY MOUTH ONCE A DAY
     Route: 048
  6. LYRICA [Suspect]
     Active Substance: PREGABALIN
     Indication: FIBROMYALGIA
     Dosage: 225 MG, 2X/DAY
     Route: 048
  7. LYRICA [Suspect]
     Active Substance: PREGABALIN
     Dosage: 100 MG ONCE IN THE MORNING AND ONCE AT NIGHT
     Dates: start: 20160727, end: 20160728
  8. LYRICA [Suspect]
     Active Substance: PREGABALIN
     Dosage: 100 MG IN THE MORNING AND 75 MG AT NIGHT
     Dates: start: 20160729
  9. METAXALONE. [Concomitant]
     Active Substance: METAXALONE
     Indication: MUSCLE SPASMS
     Dosage: 800MG ONE TABLET BY MOUTH TWICE A DAY AS NEEDED
     Route: 048
  10. VENLAFAXINE [Concomitant]
     Active Substance: VENLAFAXINE HYDROCHLORIDE
     Indication: ENCEPHALOPATHY
     Dosage: 225 MG, 1X/DAY
     Route: 048
  11. PLAQUINOL [Concomitant]
     Active Substance: HYDROXYCHLOROQUINE SULFATE
     Indication: LYME DISEASE
  12. LYRICA [Suspect]
     Active Substance: PREGABALIN
     Dosage: 150 MG TWICE A DAY
     Dates: start: 20160722
  13. LYRICA [Suspect]
     Active Substance: PREGABALIN
     Dosage: 150 MG IN THE MORNING AND 100 MG AT NIGHT
     Dates: start: 20160726
  14. PLAQUINOL [Concomitant]
     Active Substance: HYDROXYCHLOROQUINE SULFATE
     Indication: ARTHRITIS
     Dosage: 200MG ONE TABLET BY MOUTH TWICE A DAY
     Route: 048

REACTIONS (14)
  - Fatigue [Not Recovered/Not Resolved]
  - Intentional product misuse [Not Recovered/Not Resolved]
  - Neck pain [Not Recovered/Not Resolved]
  - Pain of skin [Not Recovered/Not Resolved]
  - Withdrawal syndrome [Not Recovered/Not Resolved]
  - Diarrhoea [Not Recovered/Not Resolved]
  - Back pain [Not Recovered/Not Resolved]
  - Disturbance in attention [Not Recovered/Not Resolved]
  - Moaning [Unknown]
  - Abdominal pain upper [Not Recovered/Not Resolved]
  - Irritability [Not Recovered/Not Resolved]
  - Malaise [Not Recovered/Not Resolved]
  - Hypoaesthesia [Not Recovered/Not Resolved]
  - Night sweats [Not Recovered/Not Resolved]

NARRATIVE: CASE EVENT DATE: 20130723
